FAERS Safety Report 21349454 (Version 2)
Quarter: 2022Q4

REPORT INFORMATION
  Report Type: Spontaneous
  Country: JP (occurrence: JP)
  Receive Date: 20220919
  Receipt Date: 20221007
  Transmission Date: 20230113
  Serious: Yes (Death)
  Sender: FDA-Public Use
  Company Number: JP-CHUGAI-2022036188

PATIENT
  Age: 7 Decade
  Sex: Female

DRUGS (3)
  1. PERJETA [Suspect]
     Active Substance: PERTUZUMAB
     Indication: Breast cancer
     Dosage: MOST RECENT DOSE ADMINISTERED ON 29/AUG/2022, SINGLE
     Route: 041
     Dates: start: 20220829
  2. TRASTUZUMAB [Suspect]
     Active Substance: TRASTUZUMAB
     Indication: Breast cancer
     Dosage: SINGLE, MOST RECENT DOSE ADMINISTERED ON 29/AUG/2022
     Route: 041
     Dates: start: 20220829
  3. DOCETAXEL [Suspect]
     Active Substance: DOCETAXEL
     Indication: HER2 positive breast cancer
     Dosage: UNK, SINGLE, MOST RECENT DOSE ADMINISTERED ON 29/AUG/2022
     Route: 041
     Dates: start: 20220829

REACTIONS (2)
  - Tumour lysis syndrome [Fatal]
  - Diarrhoea [Not Recovered/Not Resolved]

NARRATIVE: CASE EVENT DATE: 20220829
